FAERS Safety Report 4394034-3 (Version None)
Quarter: 2004Q3

REPORT INFORMATION
  Report Type: 
  Country: None (occurrence: None)
  Receive Date: 20040708
  Receipt Date: 20040629
  Transmission Date: 20050211
  Serious: Yes (Other)
  Sender: FDA-Public Use
  Company Number: 2004-UK-00629UK

PATIENT
  Age: 60 Year
  Sex: Female

DRUGS (2)
  1. MORPHINE [Suspect]
     Indication: PAIN
     Dosage: 180 MG (90 MG, BD), PO
     Route: 048
  2. NALBUPHINE HCL [Suspect]
     Indication: ANALGESIC EFFECT
     Dosage: 30 MG, IV
     Route: 042

REACTIONS (2)
  - DRUG WITHDRAWAL SYNDROME [None]
  - DYSKINESIA [None]
